FAERS Safety Report 4586954-1 (Version None)
Quarter: 2005Q1

REPORT INFORMATION
  Report Type: 
  Country: None (occurrence: None)
  Receive Date: 20050218
  Receipt Date: 20050209
  Transmission Date: 20050727
  Serious: Yes (Hospitalization)
  Sender: FDA-Public Use
  Company Number: JP-BRISTOL-MYERS SQUIBB COMPANY-12856555

PATIENT
  Age: 15 Year
  Sex: Female

DRUGS (3)
  1. VEPESID [Suspect]
     Indication: OVARIAN GERM CELL CANCER
     Route: 042
     Dates: start: 20040510, end: 20040510
  2. BLEO [Suspect]
     Indication: OVARIAN GERM CELL CANCER
     Route: 042
     Dates: start: 20040510, end: 20040510
  3. RANDA [Suspect]
     Indication: OVARIAN GERM CELL CANCER
     Route: 042
     Dates: start: 20040510, end: 20040510

REACTIONS (1)
  - WHITE BLOOD CELL COUNT DECREASED [None]
